FAERS Safety Report 16158861 (Version 1)
Quarter: 2019Q2

REPORT INFORMATION
  Report Type: Spontaneous
  Country: US (occurrence: US)
  Receive Date: 20190403
  Receipt Date: 20190403
  Transmission Date: 20190711
  Serious: Yes (Disabling, Other)
  Sender: FDA-Public Use
  Company Number: None

PATIENT
  Age: 70 Year
  Sex: Female
  Weight: 47.25 kg

DRUGS (26)
  1. BONIVA [Suspect]
     Active Substance: IBANDRONATE SODIUM
     Indication: OSTEOPENIA
     Dosage: ?          QUANTITY:1 TABLET(S);OTHER FREQUENCY:WEEKLY;?
     Route: 048
     Dates: start: 20100101, end: 20161201
  2. VITAMIN C [Concomitant]
     Active Substance: ASCORBIC ACID
  3. HUMIRA [Concomitant]
     Active Substance: ADALIMUMAB
  4. FUROSEMIDE. [Concomitant]
     Active Substance: FUROSEMIDE
  5. PROAIR HFA [Concomitant]
     Active Substance: ALBUTEROL SULFATE
  6. VERAMYST [Concomitant]
     Active Substance: FLUTICASONE FUROATE
  7. VALACYCLOVIR [Concomitant]
     Active Substance: VALACYCLOVIR HYDROCHLORIDE
  8. ASPIRIN. [Concomitant]
     Active Substance: ASPIRIN
  9. PENTACOZINE/NALOXONE [Concomitant]
  10. NITROSTAT [Concomitant]
     Active Substance: NITROGLYCERIN
  11. AMLODIPINE [Concomitant]
     Active Substance: AMLODIPINE BESYLATE
  12. VIVISCAL [Concomitant]
  13. BIOTIN [Concomitant]
     Active Substance: BIOTIN
  14. VITAMIN B12 [Concomitant]
     Active Substance: CYANOCOBALAMIN
  15. MELOXICAM. [Concomitant]
     Active Substance: MELOXICAM
  16. FOLIC ACID. [Concomitant]
     Active Substance: FOLIC ACID
  17. RESTASIS [Concomitant]
     Active Substance: CYCLOSPORINE
  18. TURMERIC [Concomitant]
     Active Substance: HERBALS\TURMERIC
  19. VITAMIN E [Concomitant]
     Active Substance: .ALPHA.-TOCOPHEROL
  20. SIMVASTATIN. [Concomitant]
     Active Substance: SIMVASTATIN
  21. BETA CAROTENE [Concomitant]
  22. ADVAIR HFA [Concomitant]
     Active Substance: FLUTICASONE PROPIONATE\SALMETEROL XINAFOATE
  23. METOPROLOL. [Concomitant]
     Active Substance: METOPROLOL
  24. OMEPRAZOLE. [Concomitant]
     Active Substance: OMEPRAZOLE
  25. ISOSORBIDE. [Concomitant]
     Active Substance: ISOSORBIDE
  26. SODIUM BICARBONATE. [Concomitant]
     Active Substance: SODIUM BICARBONATE

REACTIONS (1)
  - Osteonecrosis of jaw [None]

NARRATIVE: CASE EVENT DATE: 20100101
